FAERS Safety Report 4527680-4 (Version None)
Quarter: 2004Q4

REPORT INFORMATION
  Report Type: 
  Country: None (occurrence: None)
  Receive Date: 20041215
  Receipt Date: 20041105
  Transmission Date: 20050328
  Serious: Yes (Disabling)
  Sender: FDA-Public Use
  Company Number: US-MERCK-0411USA01090

PATIENT
  Age: 69 Year
  Sex: Female
  Weight: 87 kg

DRUGS (4)
  1. MEVACOR [Suspect]
     Indication: BLOOD CHOLESTEROL INCREASED
     Route: 048
     Dates: start: 20040101, end: 20041001
  2. MEVACOR [Suspect]
     Route: 048
     Dates: start: 19910101
  3. CARDURA [Concomitant]
     Route: 065
  4. TENORMIN [Concomitant]
     Route: 065

REACTIONS (5)
  - ASTHENIA [None]
  - BUTTOCK PAIN [None]
  - DRUG INEFFECTIVE [None]
  - MYALGIA [None]
  - PAIN IN EXTREMITY [None]
